FAERS Safety Report 6822870-X (Version None)
Quarter: 2010Q3

REPORT INFORMATION
  Report Type: 
  Country: None (occurrence: None)
  Receive Date: 20100707
  Receipt Date: 20100707
  Transmission Date: 20110219
  Serious: No
  Sender: FDA-Public Use
  Company Number: None

PATIENT
  Age: 61 Year
  Sex: Female
  Weight: 49.8957 kg

DRUGS (2)
  1. LEVAQUIN [Suspect]
     Indication: COUGH
     Dosage: 1 DAILY PO
     Route: 048
     Dates: start: 20100123, end: 20100127
  2. LEVAQUIN [Suspect]
     Indication: PULMONARY CONGESTION
     Dosage: 1 DAILY PO
     Route: 048
     Dates: start: 20100123, end: 20100127

REACTIONS (2)
  - DRUG INEFFECTIVE [None]
  - TENDON RUPTURE [None]
